FAERS Safety Report 4336207-1 (Version None)
Quarter: 2004Q2

REPORT INFORMATION
  Report Type: 
  Country: None (occurrence: None)
  Receive Date: 20040406
  Receipt Date: 20040323
  Transmission Date: 20050107
  Serious: No
  Sender: FDA-Public Use
  Company Number: 2004AP01910

PATIENT
  Age: 78 Year
  Sex: Female

DRUGS (12)
  1. IRESSA [Suspect]
     Indication: LUNG ADENOCARCINOMA
     Dosage: 250 MG DAILY PO
     Route: 048
     Dates: start: 20030718, end: 20030818
  2. IRESSA [Suspect]
     Indication: NON-SMALL CELL LUNG CANCER
     Dosage: 250 MG DAILY PO
     Route: 048
     Dates: start: 20030718, end: 20030818
  3. IRESSA [Suspect]
     Indication: LUNG ADENOCARCINOMA
     Dosage: 250 MG DAILY PO
     Route: 048
     Dates: start: 20030828
  4. IRESSA [Suspect]
     Indication: NON-SMALL CELL LUNG CANCER
     Dosage: 250 MG DAILY PO
     Route: 048
     Dates: start: 20030828
  5. MUCOSTA [Concomitant]
  6. ASTOMIN [Concomitant]
  7. MUCODYNE [Concomitant]
  8. BAKUMONDOUTO [Concomitant]
  9. CISPLATIN [Concomitant]
  10. VINDESINE SULFATE [Concomitant]
  11. CARBOPLATIN [Concomitant]
  12. RADIOTHERAPY [Concomitant]

REACTIONS (1)
  - PNEUMONIA [None]
